FAERS Safety Report 6200461-1 (Version None)
Quarter: 2009Q2

REPORT INFORMATION
  Report Type: 
  Country: None (occurrence: None)
  Receive Date: 20090522
  Receipt Date: 20090520
  Transmission Date: 20091009
  Serious: Yes (Other)
  Sender: FDA-Public Use
  Company Number: CH-WYE-G03710009

PATIENT
  Age: 68 Year
  Sex: Male

DRUGS (13)
  1. EFFEXOR [Suspect]
     Route: 048
     Dates: start: 20090317, end: 20090329
  2. EFFEXOR [Interacting]
     Route: 048
     Dates: start: 20090330, end: 20090409
  3. EFFEXOR [Interacting]
     Route: 048
     Dates: start: 20090410, end: 20090412
  4. EFFEXOR [Interacting]
     Route: 048
     Dates: start: 20090413
  5. MIMPARA [Interacting]
     Indication: HYPERPARATHYROIDISM
     Dates: start: 20080101
  6. LAMICTAL [Concomitant]
     Route: 048
     Dates: start: 20080101, end: 20090420
  7. LAMICTAL [Concomitant]
     Route: 048
     Dates: start: 20090421
  8. REMERON [Concomitant]
     Route: 048
     Dates: start: 20090209, end: 20090212
  9. REMERON [Concomitant]
     Route: 048
     Dates: start: 20090213
  10. SEROQUEL [Concomitant]
     Route: 048
     Dates: start: 20090219, end: 20090224
  11. SEROQUEL [Concomitant]
     Route: 048
     Dates: start: 20090225, end: 20090301
  12. SEROQUEL [Concomitant]
     Route: 048
     Dates: start: 20090302, end: 20090310
  13. SEROQUEL [Concomitant]
     Route: 048
     Dates: start: 20090311

REACTIONS (5)
  - DIZZINESS [None]
  - DRUG INTERACTION [None]
  - HEADACHE [None]
  - HYPERTENSIVE CRISIS [None]
  - SUPRAVENTRICULAR TACHYCARDIA [None]
